FAERS Safety Report 18092827 (Version 1)
Quarter: 2020Q3

REPORT INFORMATION
  Report Type: Spontaneous
  Country: US (occurrence: US)
  Receive Date: 20200730
  Receipt Date: 20200730
  Transmission Date: 20201103
  Serious: No
  Sender: FDA-Public Use
  Company Number: None

PATIENT
  Sex: Male

DRUGS (1)
  1. SERTRALINE [Suspect]
     Active Substance: SERTRALINE HYDROCHLORIDE
     Indication: DEPRESSION
     Route: 048

REACTIONS (5)
  - Abdominal discomfort [None]
  - Hot flush [None]
  - Night sweats [None]
  - Dizziness [None]
  - Vomiting [None]

NARRATIVE: CASE EVENT DATE: 20200327
